FAERS Safety Report 9358048 (Version 1)
Quarter: 2013Q2

REPORT INFORMATION
  Report Type: Spontaneous
  Country: US (occurrence: US)
  Receive Date: 20130620
  Receipt Date: 20130620
  Transmission Date: 20140414
  Serious: No
  Sender: FDA-Public Use
  Company Number: US-PFIZER INC-2013184448

PATIENT
  Age: 53 Year
  Sex: Female
  Weight: 68.93 kg

DRUGS (10)
  1. LYRICA [Suspect]
     Indication: FIBROMYALGIA
     Dosage: 100 MG, 3X/DAY
     Route: 048
  2. EFFEXOR [Concomitant]
     Dosage: UNK
  3. PREMARIN [Concomitant]
     Dosage: UNK
     Route: 048
  4. PROTONIX [Concomitant]
     Dosage: UNK
  5. SYNTHROID [Concomitant]
     Indication: THYROID DISORDER
     Dosage: UNK
  6. FLEXERIL [Concomitant]
     Dosage: UNK
  7. ALBUTEROL [Concomitant]
     Dosage: UNK
  8. REQUIP [Concomitant]
     Dosage: UNK
  9. FERROUS SULFATE [Concomitant]
     Dosage: UNK
  10. FLONASE [Concomitant]
     Dosage: UNK
     Route: 045

REACTIONS (1)
  - Pain [Not Recovered/Not Resolved]
